FAERS Safety Report 20854928 (Version 1)
Quarter: 2022Q2

REPORT INFORMATION
  Report Type: Spontaneous
  Country: CA (occurrence: None)
  Receive Date: 20220519
  Receipt Date: 20220519
  Transmission Date: 20220721
  Serious: Yes (Hospitalization, Other)
  Sender: FDA-Public Use
  Company Number: None

PATIENT
  Age: 77 Year
  Sex: Female
  Weight: 75 kg

DRUGS (8)
  1. CHLORTHALIDONE [Suspect]
     Active Substance: CHLORTHALIDONE
     Indication: Hypertension
     Dosage: FREQUENCY : DAILY;?
     Route: 048
     Dates: start: 20190604, end: 20220406
  2. TELMISARTAN [Concomitant]
     Active Substance: TELMISARTAN
  3. AMLODIPINE [Concomitant]
     Active Substance: AMLODIPINE BESYLATE
  4. Anoro Elipta Inhaler [Concomitant]
  5. ASPIRIN [Concomitant]
     Active Substance: ASPIRIN
  6. OMEGA 3 [Concomitant]
     Active Substance: CAPSAICIN
  7. MINERALS\VITAMINS [Concomitant]
     Active Substance: MINERALS\VITAMINS
  8. DIETARY SUPPLEMENT\UBIDECARENONE [Concomitant]
     Active Substance: DIETARY SUPPLEMENT\UBIDECARENONE

REACTIONS (9)
  - Syncope [None]
  - Nausea [None]
  - Hyperhidrosis [None]
  - Loss of consciousness [None]
  - Dehydration [None]
  - Blood sodium decreased [None]
  - Asthenia [None]
  - Malaise [None]
  - Muscle spasms [None]

NARRATIVE: CASE EVENT DATE: 20220404
